FAERS Safety Report 7301065-X (Version None)
Quarter: 2011Q1

REPORT INFORMATION
  Report Type: 
  Country: None (occurrence: None)
  Receive Date: 20110218
  Receipt Date: 20110211
  Transmission Date: 20110831
  Serious: Yes (Hospitalization)
  Sender: FDA-Public Use
  Company Number: US-US-EMD SERONO, INC.-230760J10USA

PATIENT
  Sex: Female
  Weight: 51 kg

DRUGS (10)
  1. FOSAMAX [Concomitant]
     Indication: OSTEOPOROSIS
  2. VERAPAMIL [Concomitant]
     Indication: MIGRAINE
  3. ZOLOFT [Concomitant]
     Indication: DEPRESSION
  4. DETROL LA [Concomitant]
     Indication: NEUROGENIC BLADDER
  5. VASOTEC [Concomitant]
     Indication: HYPERTENSION
     Route: 065
  6. UNSPECIFIED MEDICATION [Concomitant]
     Indication: ANAEMIA
     Route: 065
  7. NEURONTIN [Concomitant]
     Indication: PAIN
  8. STEROIDS [Suspect]
     Indication: MULTIPLE SCLEROSIS
     Route: 065
  9. DITROPAN [Concomitant]
     Indication: NEUROGENIC BLADDER
  10. REBIF [Suspect]
     Indication: MULTIPLE SCLEROSIS
     Route: 058
     Dates: start: 20070129

REACTIONS (1)
  - OSTEONECROSIS [None]
